FAERS Safety Report 18464202 (Version 1)
Quarter: 2020Q4

REPORT INFORMATION
  Report Type: Report from Study
  Country: FR (occurrence: FR)
  Receive Date: 20201104
  Receipt Date: 20201104
  Transmission Date: 20210114
  Serious: Yes (Hospitalization, Other)
  Sender: FDA-Public Use
  Company Number: FR-JAZZ-2020-FR-006938

PATIENT

DRUGS (6)
  1. BACTRIM [Concomitant]
     Active Substance: SULFAMETHOXAZOLE\TRIMETHOPRIM
     Indication: GRAFT VERSUS HOST DISEASE
  2. DEFITELIO [Suspect]
     Active Substance: DEFIBROTIDE SODIUM
     Indication: PROPHYLAXIS
     Dosage: 23.7 MILLIGRAM/KILOGRAM/DAY
     Route: 042
     Dates: start: 20200102, end: 20200127
  3. FLUDARABINE [Concomitant]
     Active Substance: FLUDARABINE PHOSPHATE
     Indication: PRODUCT USED FOR UNKNOWN INDICATION
  4. URSODEOXYCHOLIC ACID [Concomitant]
     Active Substance: URSODIOL
     Indication: PROPHYLAXIS
  5. BUSULFAN. [Concomitant]
     Active Substance: BUSULFAN
     Indication: GRAFT VERSUS HOST DISEASE
  6. ARACYTINE [Concomitant]
     Active Substance: CYTARABINE
     Indication: GRAFT VERSUS HOST DISEASE

REACTIONS (4)
  - Graft versus host disease in gastrointestinal tract [Unknown]
  - Hypotension [Recovered/Resolved]
  - Off label use [Unknown]
  - COVID-19 [Recovered/Resolved]

NARRATIVE: CASE EVENT DATE: 20200102
